FAERS Safety Report 5268819-5 (Version None)
Quarter: 2007Q1

REPORT INFORMATION
  Report Type: 
  Country: None (occurrence: None)
  Receive Date: 20061213
  Receipt Date: 20060220
  Transmission Date: 20070707
  Serious: No
  Sender: FDA-Public Use
  Company Number: 2006UW00805

PATIENT
  Sex: Female

DRUGS (1)
  1. NOLVADEX [Suspect]

REACTIONS (3)
  - HEPATIC CIRRHOSIS [None]
  - HEPATOMEGALY [None]
  - RED BLOOD CELL COUNT DECREASED [None]
